FAERS Safety Report 6202080-X (Version None)
Quarter: 2009Q2

REPORT INFORMATION
  Report Type: 
  Country: None (occurrence: None)
  Receive Date: 20090520
  Receipt Date: 20090508
  Transmission Date: 20091009
  Serious: Yes (Hospitalization)
  Sender: FDA-Public Use
  Company Number: 2008-180467-NL

PATIENT
  Age: 44 Year
  Sex: Female
  Weight: 72.6 kg

DRUGS (2)
  1. NUVARING [Suspect]
     Indication: MENSTRUATION IRREGULAR
     Dosage: Q 25 DAYS
     Dates: start: 20040426, end: 20040712
  2. NUVARING [Suspect]
     Indication: MENSTRUATION IRREGULAR
     Dosage: Q 25 DAYS

REACTIONS (12)
  - ANEURYSM [None]
  - BLOOD HUMAN CHORIONIC GONADOTROPIN INCREASED [None]
  - BLOOD LUTEINISING HORMONE INCREASED [None]
  - CONSTIPATION [None]
  - GRAND MAL CONVULSION [None]
  - HAEMOGLOBIN DECREASED [None]
  - HYPOTHYROIDISM [None]
  - NECK MASS [None]
  - SUBDURAL HAEMATOMA [None]
  - SUPERIOR SAGITTAL SINUS THROMBOSIS [None]
  - TRANSVERSE SINUS THROMBOSIS [None]
  - UTERINE LEIOMYOMA [None]
